FAERS Safety Report 24185557 (Version 2)
Quarter: 2025Q1

REPORT INFORMATION
  Report Type: Spontaneous
  Country: CA (occurrence: CA)
  Receive Date: 20240807
  Receipt Date: 20250219
  Transmission Date: 20250408
  Serious: Yes (Other)
  Sender: MYLAN
  Company Number: CA-MYLANLABS-2024M1071822

PATIENT
  Sex: Male

DRUGS (1)
  1. REVATIO [Suspect]
     Active Substance: SILDENAFIL CITRATE
     Indication: Fontan procedure
     Dosage: 15 MILLIGRAM, TID (THREE TIMES A DAY)
     Route: 048
     Dates: start: 20240806

REACTIONS (1)
  - Off label use [Unknown]
